FAERS Safety Report 4888681-X (Version None)
Quarter: 2005Q4

REPORT INFORMATION
  Report Type: 
  Country: None (occurrence: None)
  Receive Date: 20051216
  Receipt Date: 20050908
  Transmission Date: 20060501
  Serious: No
  Sender: FDA-Public Use
  Company Number: USA0508106836

PATIENT
  Age: 90 Year
  Sex: Male

DRUGS (4)
  1. CIALIS [Suspect]
     Indication: ERECTILE DYSFUNCTION
     Dosage: 20 MG
     Dates: start: 20050826
  2. LIDODERM [Concomitant]
  3. NEURONTIN [Concomitant]
  4. ICAPS [Concomitant]

REACTIONS (1)
  - CHEST PAIN [None]
